FAERS Safety Report 6768065-X (Version None)
Quarter: 2010Q2

REPORT INFORMATION
  Report Type: 
  Country: None (occurrence: None)
  Receive Date: 20100614
  Receipt Date: 20100601
  Transmission Date: 20101027
  Serious: Yes (Hospitalization)
  Sender: FDA-Public Use
  Company Number: US-JNJFOC-20100601072

PATIENT
  Age: 74 Year
  Sex: Female
  Weight: 40.82 kg

DRUGS (10)
  1. FAST ACTING MYLANTA ORIGINAL [Suspect]
     Indication: GASTROOESOPHAGEAL REFLUX DISEASE
     Dosage: 10 ML 3-4 TIMES DAILY
     Route: 048
  2. FAST ACTING MYLANTA ORIGINAL [Suspect]
     Indication: DYSPEPSIA
     Dosage: 10 ML 3-4 TIMES DAILY
     Route: 048
  3. CARAFATE [Concomitant]
     Indication: ABDOMINAL PAIN UPPER
     Dosage: 1 G 3-4 TIMES DAILY
  4. SYNTHROID [Concomitant]
     Indication: HYPOTHYROIDISM
  5. VITAMIN B-12 [Concomitant]
     Indication: MEDICAL DIET
     Route: 050
  6. PROCRIT [Concomitant]
     Indication: ANAEMIA
  7. LASIX [Concomitant]
     Indication: DIURETIC THERAPY
  8. IRON [Concomitant]
     Indication: MEDICAL DIET
  9. NASONEX [Concomitant]
     Indication: MULTIPLE ALLERGIES
  10. ALBUTEROL [Concomitant]
     Indication: DYSPNOEA
     Route: 055

REACTIONS (3)
  - ARTHRALGIA [None]
  - BONE PAIN [None]
  - HYPONATRAEMIA [None]
